FAERS Safety Report 23328470 (Version 1)
Quarter: 2023Q4

REPORT INFORMATION
  Report Type: Spontaneous
  Country: IT (occurrence: IT)
  Receive Date: 20231221
  Receipt Date: 20231221
  Transmission Date: 20240109
  Serious: Yes (Life-Threatening, Hospitalization)
  Sender: FDA-Public Use
  Company Number: None

PATIENT
  Age: 35 Year
  Sex: Female

DRUGS (3)
  1. CYMBALTA [Suspect]
     Active Substance: DULOXETINE HYDROCHLORIDE
     Indication: Depression
     Dosage: 30 TABLETS OF 60 MG TOGETHER
     Route: 048
     Dates: start: 20231217, end: 20231217
  2. MORPHINE [Interacting]
     Active Substance: MORPHINE
     Indication: Fibromyalgia
     Dosage: 10 MG/1 ML
     Route: 030
     Dates: start: 20231201, end: 20231217
  3. OXYCONTIN [Interacting]
     Active Substance: OXYCODONE HYDROCHLORIDE
     Indication: Fibromyalgia
     Dosage: 20 MG, BID
     Route: 048
     Dates: start: 20231201, end: 20231217

REACTIONS (6)
  - Drug abuse [Recovered/Resolved]
  - Overflow diarrhoea [Recovering/Resolving]
  - Disorganised speech [Recovering/Resolving]
  - Conversion disorder [Recovering/Resolving]
  - Toxicity to various agents [Recovering/Resolving]
  - Vomiting [Recovering/Resolving]

NARRATIVE: CASE EVENT DATE: 20231217
